FAERS Safety Report 8457835-8 (Version None)
Quarter: 2012Q2

REPORT INFORMATION
  Report Type: 
  Country: None (occurrence: None)
  Receive Date: 20120323
  Receipt Date: 20111011
  Transmission Date: 20120825
  Serious: Yes (Hospitalization)
  Sender: FDA-Public Use
  Company Number: 163-21880-11081591

PATIENT
  Age: 50 Year
  Sex: Male
  Weight: 113.3993 kg

DRUGS (6)
  1. ASPIRIN [Concomitant]
  2. REVLIMID [Suspect]
     Indication: MULTIPLE MYELOMA
     Dosage: 25 MG, DAILY X 21 DAYS, PO; 10 MG, DAILY X 21 DAYS, PO; 15 MG, DAILY X 21 DAYS,PO
     Route: 048
     Dates: start: 20110701
  3. REVLIMID [Suspect]
     Indication: MULTIPLE MYELOMA
     Dosage: 25 MG, DAILY X 21 DAYS, PO; 10 MG, DAILY X 21 DAYS, PO; 15 MG, DAILY X 21 DAYS,PO
     Route: 048
     Dates: start: 20110801
  4. REVLIMID [Suspect]
     Indication: MULTIPLE MYELOMA
     Dosage: 25 MG, DAILY X 21 DAYS, PO; 10 MG, DAILY X 21 DAYS, PO; 15 MG, DAILY X 21 DAYS,PO
     Route: 048
     Dates: start: 20110607
  5. ZOMETA [Concomitant]
  6. DECADRON [Concomitant]

REACTIONS (1)
  - DEEP VEIN THROMBOSIS [None]
